FAERS Safety Report 25358114 (Version 1)
Quarter: 2025Q2

REPORT INFORMATION
  Report Type: Spontaneous
  Country: NO (occurrence: NO)
  Receive Date: 20250526
  Receipt Date: 20250526
  Transmission Date: 20250716
  Serious: Yes (Hospitalization, Other)
  Sender: CHEPLAPHARM
  Company Number: NO-CHEPLA-2025006489

PATIENT
  Age: 5 Decade
  Sex: Male

DRUGS (13)
  1. GANCICLOVIR [Suspect]
     Active Substance: GANCICLOVIR
     Indication: Cytomegalovirus enterocolitis
     Route: 042
  2. CHOLESTYRAMINE [Suspect]
     Active Substance: CHOLESTYRAMINE
     Indication: Diarrhoea
  3. LOPERAMIDE [Suspect]
     Active Substance: LOPERAMIDE
  4. METHYLPREDNISOLONE [Suspect]
     Active Substance: METHYLPREDNISOLONE
     Dosage: DAILY DOSE: 60 MILLIGRAM
     Route: 042
  5. PREDNISOLONE [Concomitant]
     Active Substance: PREDNISOLONE
     Indication: Iridocyclitis
     Dosage: DAILY DOSE: 17.5 MILLIGRAM
  6. PREDNISOLONE [Concomitant]
     Active Substance: PREDNISOLONE
     Indication: Scleritis
     Dosage: DAILY DOSE: 17.5 MILLIGRAM
  7. PREDNISOLONE [Concomitant]
     Active Substance: PREDNISOLONE
     Indication: Iridocyclitis
     Dosage: DAILY DOSE: 10 MILLIGRAM
  8. PREDNISOLONE [Concomitant]
     Active Substance: PREDNISOLONE
     Indication: Scleritis
     Dosage: DAILY DOSE: 10 MILLIGRAM
  9. RITUXIMAB [Concomitant]
     Active Substance: RITUXIMAB
     Indication: Enterocolitis
     Dosage: DAY 1?DAILY DOSE: 375 MILLIGRAM/M?
     Route: 042
  10. BENDAMUSTINE [Concomitant]
     Active Substance: BENDAMUSTINE
     Dosage: ON DAYS 2 AND 2?DAILY DOSE: 90 MILLIGRAM/M?
     Route: 042
  11. BENDAMUSTINE [Concomitant]
     Active Substance: BENDAMUSTINE
     Route: 042
  12. PENICILLIN G [Concomitant]
     Active Substance: PENICILLIN G
     Route: 042
  13. GENTAMICIN [Concomitant]
     Active Substance: GENTAMICIN
     Route: 042

REACTIONS (13)
  - Hypoalbuminaemia [Unknown]
  - Renal failure [Unknown]
  - Hypogammaglobulinaemia [Unknown]
  - Enterococcal infection [Unknown]
  - Pseudomonas infection [Unknown]
  - Hypernatraemia [Unknown]
  - Hypokalaemia [Unknown]
  - Cystatin C increased [Unknown]
  - Hypovolaemia [Unknown]
  - Electrolyte imbalance [Unknown]
  - Protein total decreased [Unknown]
  - Drug ineffective [Unknown]
  - Off label use [Unknown]
